FAERS Safety Report 6581027-0 (Version None)
Quarter: 2010Q1

REPORT INFORMATION
  Report Type: 
  Country: None (occurrence: None)
  Receive Date: 20100215
  Receipt Date: 20100202
  Transmission Date: 20100710
  Serious: Yes (Other)
  Sender: FDA-Public Use
  Company Number: US-ELI_LILLY_AND_COMPANY-US201002002297

PATIENT
  Sex: Female

DRUGS (6)
  1. EVISTA [Suspect]
     Dosage: 60 MG, DAILY (1/D)
     Route: 065
     Dates: start: 20000901, end: 20091031
  2. ACTONEL [Concomitant]
     Indication: OSTEOPENIA
     Dates: start: 20020901
  3. VITAMINS [Concomitant]
     Indication: ALOPECIA
  4. CALCIUM [Concomitant]
  5. VITAMIN E [Concomitant]
  6. MULTI-VITAMIN [Concomitant]

REACTIONS (4)
  - ALOPECIA [None]
  - BREAST CANCER [None]
  - RESORPTION BONE INCREASED [None]
  - STRESS [None]
